FAERS Safety Report 13824645 (Version 2)
Quarter: 2019Q4

REPORT INFORMATION
  Report Type: Spontaneous
  Country: US (occurrence: US)
  Receive Date: 20170802
  Receipt Date: 20191218
  Transmission Date: 20200122
  Serious: Yes (Other)
  Sender: FDA-Public Use
  Company Number: US-ACTELION-A-CH2017-157231

PATIENT
  Age: 33 Year
  Sex: Male

DRUGS (1)
  1. EPOPROSTENOL SODIUM. [Suspect]
     Active Substance: EPOPROSTENOL SODIUM
     Indication: PULMONARY ARTERIAL HYPERTENSION
     Dosage: UNK
     Route: 042

REACTIONS (16)
  - Goitre [Unknown]
  - Tri-iodothyronine increased [Unknown]
  - Hyperthyroidism [Unknown]
  - Thyroidectomy [Unknown]
  - Orthopnoea [Unknown]
  - Lymphadenopathy [Unknown]
  - Blood thyroid stimulating hormone decreased [Unknown]
  - Thyroxine free increased [Unknown]
  - Thyroid stimulating immunoglobulin increased [Unknown]
  - Plethoric face [Unknown]
  - Respiratory distress [Unknown]
  - Tachycardia [Unknown]
  - Dysphagia [Unknown]
  - Basedow^s disease [Unknown]
  - Dyspnoea [Unknown]
  - Localised oedema [Unknown]
